FAERS Safety Report 5887965-6 (Version None)
Quarter: 2008Q3

REPORT INFORMATION
  Report Type: 
  Country: None (occurrence: None)
  Receive Date: 20080918
  Receipt Date: 20080910
  Transmission Date: 20090109
  Serious: Yes (Death)
  Sender: FDA-Public Use
  Company Number: B0536401A

PATIENT
  Age: 15 Year
  Sex: Female
  Weight: 79 kg

DRUGS (1)
  1. LAMOTRIGINE [Suspect]
     Dosage: 250MG PER DAY
     Route: 048
     Dates: start: 20080804, end: 20080804

REACTIONS (1)
  - EPILEPSY [None]
